FAERS Safety Report 18538420 (Version 1)
Quarter: 2020Q4

REPORT INFORMATION
  Report Type: Spontaneous
  Country: GB (occurrence: GB)
  Receive Date: 20201124
  Receipt Date: 20201124
  Transmission Date: 20210114
  Serious: Yes (Death, Hospitalization, Other)
  Sender: FDA-Public Use
  Company Number: GB-AUROBINDO-AUR-APL-2011-05221

PATIENT
  Age: 27 Year
  Sex: Female

DRUGS (5)
  1. DICLOFENAC [Suspect]
     Active Substance: DICLOFENAC
     Indication: PRODUCT USED FOR UNKNOWN INDICATION
     Dosage: 2800 MILLIGRAM, ONCE A DAY
     Route: 048
  2. CO-DYDRAMOL [Suspect]
     Active Substance: ACETAMINOPHEN\DIHYDROCODEINE
     Dosage: 8 GRAM
     Route: 065
  3. IBUPROFEN. [Suspect]
     Active Substance: IBUPROFEN
     Indication: PRODUCT USED FOR UNKNOWN INDICATION
     Dosage: 7000 MG,ONCE A DAY,
     Route: 048
  4. CO-DYDRAMOL [Suspect]
     Active Substance: ACETAMINOPHEN\DIHYDROCODEINE
     Indication: PRODUCT USED FOR UNKNOWN INDICATION
     Dosage: 16 DOSAGE FORM
     Route: 048
  5. FERROUS SULFATE. [Suspect]
     Active Substance: FERROUS SULFATE
     Indication: PRODUCT USED FOR UNKNOWN INDICATION
     Dosage: 86 DOSAGE FORM
     Route: 048

REACTIONS (26)
  - Metabolic acidosis [Fatal]
  - Coagulopathy [Fatal]
  - Electrolyte imbalance [Fatal]
  - Platelet count decreased [Fatal]
  - Hypotension [Unknown]
  - White blood cell count increased [Unknown]
  - Overdose [Fatal]
  - pH body fluid decreased [Fatal]
  - Alanine aminotransferase increased [Fatal]
  - Anaemia [Fatal]
  - Blood phosphorus decreased [Fatal]
  - Acute hepatic failure [Fatal]
  - Blood calcium decreased [Fatal]
  - Hepatotoxicity [Fatal]
  - Multiple organ dysfunction syndrome [Fatal]
  - General physical health deterioration [Unknown]
  - Blood bilirubin increased [Fatal]
  - International normalised ratio increased [Fatal]
  - Blood creatine increased [Fatal]
  - Blood iron increased [Fatal]
  - Nausea [Fatal]
  - Haematemesis [Fatal]
  - Sinus tachycardia [Unknown]
  - Drug level increased [Fatal]
  - Vomiting [Fatal]
  - Blood bicarbonate decreased [Fatal]
